FAERS Safety Report 15286493 (Version 1)
Quarter: 2018Q3

REPORT INFORMATION
  Report Type: Report from Study
  Country: GB (occurrence: GB)
  Receive Date: 20180816
  Receipt Date: 20180816
  Transmission Date: 20181010
  Serious: Yes (Hospitalization, Other)
  Sender: FDA-Public Use
  Company Number: PHHY2018GB073157

PATIENT
  Sex: Male

DRUGS (1)
  1. ENTRESTO [Suspect]
     Active Substance: SACUBITRIL\VALSARTAN
     Indication: VIRAL CARDIOMYOPATHY
     Dosage: UNK
     Route: 065

REACTIONS (4)
  - Cardiac dysfunction [Unknown]
  - Product use in unapproved indication [Unknown]
  - Pruritus [Unknown]
  - Hypotension [Unknown]
